FAERS Safety Report 4714911-0 (Version None)
Quarter: 2005Q3

REPORT INFORMATION
  Report Type: 
  Country: None (occurrence: None)
  Receive Date: 20050713
  Receipt Date: 20050708
  Transmission Date: 20060218
  Serious: Yes (Death)
  Sender: FDA-Public Use
  Company Number: 214990

PATIENT
  Age: 56 Year
  Sex: Male
  Weight: 172 kg

DRUGS (3)
  1. AVASTIN [Suspect]
     Indication: COLORECTAL CANCER METASTATIC
     Dosage: 638 MG, Q3W, INTRAVENOUS
     Route: 042
     Dates: start: 20050310, end: 20050421
  2. FLUOROURACIL [Suspect]
     Indication: COLORECTAL CANCER METASTATIC
     Dosage: 750 MG, INTRAVENOUS
     Route: 042
     Dates: end: 20050426
  3. LEUCOVORIN CALCIUM [Suspect]
     Indication: COLORECTAL CANCER METASTATIC
     Dosage: 90 MG,
     Dates: end: 20050426

REACTIONS (1)
  - SUDDEN DEATH [None]
